FAERS Safety Report 4354750-6 (Version None)
Quarter: 2004Q2

REPORT INFORMATION
  Report Type: 
  Country: None (occurrence: None)
  Receive Date: 20040504
  Receipt Date: 20040421
  Transmission Date: 20050107
  Serious: Yes (Life-Threatening, Hospitalization)
  Sender: FDA-Public Use
  Company Number: 2004-BP-02988BP

PATIENT
  Age: 66 Year
  Sex: Male

DRUGS (10)
  1. MICARDIS [Suspect]
     Indication: CEREBROVASCULAR ACCIDENT
     Dosage: NR (NR); PO
     Route: 048
     Dates: start: 20021113, end: 20040409
  2. MICARDIS [Suspect]
     Indication: MYOCARDIAL INFARCTION
     Dosage: NR (NR); PO
     Route: 048
     Dates: start: 20021113, end: 20040409
  3. MICARDIS [Suspect]
     Indication: PROPHYLAXIS
     Dosage: NR (NR); PO
     Route: 048
     Dates: start: 20021113, end: 20040409
  4. RAMIPRIL [Suspect]
     Indication: CEREBROVASCULAR ACCIDENT
     Dosage: NR (NR); PO
     Route: 048
     Dates: start: 20021113, end: 20040409
  5. RAMIPRIL [Suspect]
     Indication: MYOCARDIAL INFARCTION
     Dosage: NR (NR); PO
     Route: 048
     Dates: start: 20021113, end: 20040409
  6. METFORMIN (METFORMIN) (NR) [Suspect]
     Dosage: NR (NR); NR
  7. AMLODIPINE [Concomitant]
  8. ATENOLOL (ATENOLOL) (NR) [Concomitant]
  9. TRAMADOL (TRAMADOL) (NR) [Concomitant]
  10. FUROSEMIDE [Concomitant]

REACTIONS (3)
  - DYSPNOEA [None]
  - PCO2 DECREASED [None]
  - RENAL TUBULAR ACIDOSIS [None]
